FAERS Safety Report 9401458 (Version 2)
Quarter: 2013Q3

REPORT INFORMATION
  Report Type: Report from Study
  Country: JP (occurrence: JP)
  Receive Date: 20130716
  Receipt Date: 20130821
  Transmission Date: 20140515
  Serious: Yes (Other)
  Sender: FDA-Public Use
  Company Number: JP-ROCHE-1248238

PATIENT
  Sex: Male
  Weight: 82 kg

DRUGS (2)
  1. METHOXY POLYETHYLENE GLYCOL-EPOETIN BETA [Suspect]
     Indication: NEPHROGENIC ANAEMIA
     Route: 042
     Dates: start: 20120110, end: 20121204
  2. FESIN (JAPAN) [Concomitant]
     Indication: DIABETIC NEPHROPATHY
     Route: 042
     Dates: start: 20111218

REACTIONS (1)
  - Drug ineffective [Unknown]
